FAERS Safety Report 23235758 (Version 1)
Quarter: 2023Q4

REPORT INFORMATION
  Report Type: Spontaneous
  Country: CN (occurrence: CN)
  Receive Date: 20231128
  Receipt Date: 20231128
  Transmission Date: 20240109
  Serious: Yes (Life-Threatening)
  Sender: FDA-Public Use
  Company Number: CN-BAYER-2023A169981

PATIENT
  Age: 82 Year
  Sex: Female
  Weight: 45 kg

DRUGS (4)
  1. ULTRAVIST [Suspect]
     Active Substance: IOPROMIDE
     Indication: Computerised tomogram heart
     Dosage: 76.89 G, QD
     Route: 042
     Dates: start: 20231113, end: 20231113
  2. ULTRAVIST [Suspect]
     Active Substance: IOPROMIDE
     Indication: Chest discomfort
  3. ULTRAVIST [Suspect]
     Active Substance: IOPROMIDE
     Indication: Arteriosclerosis coronary artery
  4. ULTRAVIST [Suspect]
     Active Substance: IOPROMIDE
     Indication: Gastritis

REACTIONS (5)
  - Contrast media allergy [Recovered/Resolved]
  - Body temperature increased [Recovered/Resolved]
  - Temperature intolerance [Recovered/Resolved]
  - Chills [Recovered/Resolved]
  - Respiratory rate increased [Not Recovered/Not Resolved]

NARRATIVE: CASE EVENT DATE: 20231113
